FAERS Safety Report 5701004-9 (Version None)
Quarter: 2008Q2

REPORT INFORMATION
  Report Type: 
  Country: None (occurrence: None)
  Receive Date: 20080410
  Receipt Date: 20080402
  Transmission Date: 20081010
  Serious: Yes (Other)
  Sender: FDA-Public Use
  Company Number: BR-ASTRAZENECA-2008UW00307

PATIENT
  Age: 24 Year
  Sex: Female
  Weight: 58 kg

DRUGS (1)
  1. CASODEX [Suspect]
     Indication: HEADACHE
     Route: 048
     Dates: start: 20071226, end: 20071226

REACTIONS (7)
  - ABDOMINAL PAIN [None]
  - ABORTION SPONTANEOUS [None]
  - DRUG EXPOSURE DURING PREGNANCY [None]
  - MEDICATION ERROR [None]
  - NAUSEA [None]
  - OFF LABEL USE [None]
  - VAGINAL HAEMORRHAGE [None]
